FAERS Safety Report 10527723 (Version 3)
Quarter: 2014Q4

REPORT INFORMATION
  Report Type: Report from Study
  Country: US (occurrence: US)
  Receive Date: 20141020
  Receipt Date: 20141215
  Transmission Date: 20150528
  Serious: Yes (Hospitalization)
  Sender: FDA-Public Use
  Company Number: US-SA-2014SA142707

PATIENT
  Age: 67 Year
  Sex: Male
  Weight: 106 kg

DRUGS (20)
  1. TERIFLUNOMIDE [Suspect]
     Active Substance: TERIFLUNOMIDE
     Indication: MULTIPLE SCLEROSIS RELAPSE
     Route: 048
     Dates: start: 20140618
  2. ASPIRIN. [Concomitant]
     Active Substance: ASPIRIN
     Route: 048
     Dates: start: 1994
  3. VITAMIN D3 [Concomitant]
     Active Substance: CHOLECALCIFEROL
     Dosage: DOSE:1 UNIT(S)
     Route: 048
     Dates: start: 201401
  4. ELAVIL [Concomitant]
     Active Substance: AMITRIPTYLINE HYDROCHLORIDE
  5. DULCOLAX [Concomitant]
     Active Substance: BISACODYL OR DOCUSATE SODIUM
  6. FIBERCON [Concomitant]
     Active Substance: CALCIUM POLYCARBOPHIL
     Route: 048
     Dates: start: 2011
  7. PRAVASTATIN [Concomitant]
     Active Substance: PRAVASTATIN\PRAVASTATIN SODIUM
     Route: 048
     Dates: start: 2011
  8. IRON [Concomitant]
     Active Substance: IRON
     Route: 048
     Dates: start: 2011
  9. DIPHENHYDRAMINE HYDROCHLORIDE. [Concomitant]
     Active Substance: DIPHENHYDRAMINE HYDROCHLORIDE
     Route: 048
     Dates: start: 1994
  10. OXYCODONE [Concomitant]
     Active Substance: OXYCODONE
  11. PROZAC [Concomitant]
     Active Substance: FLUOXETINE HYDROCHLORIDE
  12. ROBAXIN [Concomitant]
     Active Substance: METHOCARBAMOL
  13. LIPITOR [Concomitant]
     Active Substance: ATORVASTATIN CALCIUM
  14. FIBERCON [Concomitant]
     Active Substance: CALCIUM POLYCARBOPHIL
  15. ACETAMINOPHEN. [Concomitant]
     Active Substance: ACETAMINOPHEN
     Route: 048
     Dates: start: 1994
  16. TAMSULOSIN [Concomitant]
     Active Substance: TAMSULOSIN
     Route: 048
     Dates: start: 201406
  17. PEPCID [Concomitant]
     Active Substance: FAMOTIDINE
  18. ATENOLOL. [Concomitant]
     Active Substance: ATENOLOL
     Route: 048
     Dates: start: 1994
  19. DULOXETINE HYDROCHLORIDE. [Concomitant]
     Active Substance: DULOXETINE HYDROCHLORIDE
     Route: 048
     Dates: start: 201401
  20. SENOKOT [Concomitant]
     Active Substance: SENNOSIDES

REACTIONS (1)
  - Perichondritis [Recovered/Resolved]

NARRATIVE: CASE EVENT DATE: 20141002
